FAERS Safety Report 5700414-3 (Version None)
Quarter: 2008Q2

REPORT INFORMATION
  Report Type: 
  Country: None (occurrence: None)
  Receive Date: 20080408
  Receipt Date: 20080408
  Transmission Date: 20081010
  Serious: Yes (Other)
  Sender: FDA-Public Use
  Company Number: None

PATIENT
  Sex: Male
  Weight: 33.5662 kg

DRUGS (1)
  1. SINGULAIR [Suspect]
     Indication: SEASONAL ALLERGY
     Dosage: 5MG CHEWABLE TABLET 1 X A DAY PO
     Route: 048
     Dates: start: 20070720, end: 20080329

REACTIONS (12)
  - AGGRESSION [None]
  - ANGER [None]
  - DEPRESSION [None]
  - DISTURBANCE IN ATTENTION [None]
  - INTENTIONAL SELF-INJURY [None]
  - IRRITABILITY [None]
  - MOOD SWINGS [None]
  - MYALGIA [None]
  - PAIN [None]
  - PHARYNGOLARYNGEAL PAIN [None]
  - PRURITUS [None]
  - SLEEP DISORDER [None]
